FAERS Safety Report 5196413-3 (Version None)
Quarter: 2006Q4

REPORT INFORMATION
  Report Type: 
  Country: None (occurrence: None)
  Receive Date: 20061222
  Receipt Date: 20061207
  Transmission Date: 20070319
  Serious: Yes (Other)
  Sender: FDA-Public Use
  Company Number: 232738

PATIENT
  Age: 81 Year
  Sex: Female

DRUGS (1)
  1. RANIBIZUMAB (RANIBIZUMAB) PWDR + SOLVENT, INJECTION SOLN [Suspect]
     Indication: MACULAR DEGENERATION
     Dosage: 0.5 MG, INTRAVITREAL
     Dates: start: 20060519

REACTIONS (6)
  - INCORRECT DOSE ADMINISTERED [None]
  - MEDICATION ERROR [None]
  - OCULAR DISCOMFORT [None]
  - PARACENTESIS EYE [None]
  - RETINAL ARTERY OCCLUSION [None]
  - VISUAL DISTURBANCE [None]
